FAERS Safety Report 10351001 (Version 1)
Quarter: 2014Q3

REPORT INFORMATION
  Report Type: Spontaneous
  Country: IT (occurrence: IT)
  Receive Date: 20140730
  Receipt Date: 20140730
  Transmission Date: 20150326
  Serious: Yes (Other)
  Sender: FDA-Public Use
  Company Number: IT-TEVA-496321ISR

PATIENT
  Age: 17 Year
  Sex: Female

DRUGS (2)
  1. LEXOTAN - 2,5MG/ML GOCCE ORALI, SOLUZIONE [Suspect]
     Active Substance: BROMAZEPAM
     Indication: INTENTIONAL SELF-INJURY
     Dosage: 20 ML TOTAL
     Route: 048
     Dates: start: 20140222, end: 20140222
  2. CITALOPRAM [Suspect]
     Active Substance: CITALOPRAM HYDROBROMIDE
     Indication: INTENTIONAL SELF-INJURY
     Dosage: 15 ML TOTAL
     Route: 048

REACTIONS (3)
  - Toxicity to various agents [Recovering/Resolving]
  - Drug abuse [Unknown]
  - Somnolence [Recovering/Resolving]

NARRATIVE: CASE EVENT DATE: 20140222
